FAERS Safety Report 5683182-3 (Version None)
Quarter: 2008Q1

REPORT INFORMATION
  Report Type: 
  Country: None (occurrence: None)
  Receive Date: 20080327
  Receipt Date: 20080304
  Transmission Date: 20080703
  Serious: No
  Sender: FDA-Public Use
  Company Number: US-BOEHRINGER INGELHEIM GMBH, GERMANY-2008-BP-03307BP

PATIENT
  Age: 46 Year
  Sex: Male

DRUGS (5)
  1. MIRAPEX [Suspect]
     Indication: RESTLESS LEGS SYNDROME
     Route: 048
     Dates: start: 20070801
  2. LYRICA [Concomitant]
     Indication: RESTLESS LEGS SYNDROME
  3. LORCET [Concomitant]
     Indication: FIBROMYALGIA
  4. PRINIVIL [Concomitant]
     Indication: HYPERTENSION
  5. METOPRILOL [Concomitant]
     Indication: TACHYCARDIA

REACTIONS (1)
  - ERECTILE DYSFUNCTION [None]
